FAERS Safety Report 6639805-5 (Version None)
Quarter: 2010Q1

REPORT INFORMATION
  Report Type: 
  Country: None (occurrence: None)
  Receive Date: 20100318
  Receipt Date: 20100308
  Transmission Date: 20100710
  Serious: Yes (Other)
  Sender: FDA-Public Use
  Company Number: US-MYLANLABS-2010S1002279

PATIENT
  Age: 15 Year
  Sex: Female
  Weight: 66.68 kg

DRUGS (2)
  1. CLARAVIS [Suspect]
     Indication: ACNE CYSTIC
     Dates: start: 20091001, end: 20091101
  2. AMNESTEEM [Suspect]
     Indication: ACNE CYSTIC
     Route: 048
     Dates: start: 20091104, end: 20100212

REACTIONS (2)
  - DEPRESSION [None]
  - SUICIDAL IDEATION [None]
